FAERS Safety Report 14465299 (Version 1)
Quarter: 2018Q1

REPORT INFORMATION
  Report Type: Spontaneous
  Country: US (occurrence: US)
  Receive Date: 20180130
  Receipt Date: 20180130
  Transmission Date: 20180509
  Serious: No
  Sender: FDA-Public Use
  Company Number: US-ACORDA-ACO_137122_2017

PATIENT
  Sex: Female
  Weight: 57.6 kg

DRUGS (2)
  1. AMPYRA [Suspect]
     Active Substance: DALFAMPRIDINE
     Indication: GAIT DISTURBANCE
     Dosage: 10 MG, Q 12 HRS
     Route: 048
     Dates: start: 201704, end: 20170422
  2. REBIF [Concomitant]
     Active Substance: INTERFERON BETA-1A
     Indication: PRODUCT USED FOR UNKNOWN INDICATION
     Dosage: 44 ??G, UNK
     Route: 065

REACTIONS (4)
  - Asthenia [Unknown]
  - Drug ineffective [Unknown]
  - Gait disturbance [Unknown]
  - Balance disorder [Recovered/Resolved]
